FAERS Safety Report 14495253 (Version 1)
Quarter: 2018Q1

REPORT INFORMATION
  Report Type: Spontaneous
  Country: US (occurrence: US)
  Receive Date: 20180206
  Receipt Date: 20180206
  Transmission Date: 20180509
  Serious: No
  Sender: FDA-Public Use
  Company Number: US-SMITH AND NEPHEW, INC-2017SMT00099

PATIENT
  Age: 72 Year
  Sex: Female
  Weight: 85.26 kg

DRUGS (12)
  1. REGRANEX [Suspect]
     Active Substance: BECAPLERMIN
     Indication: WOUND
     Dosage: UNK UNK, 1X/DAY FOR 12 HOURS ON AND 12 HOURS OFF
     Route: 061
     Dates: start: 20170117, end: 20170220
  2. METOPROLOL. [Concomitant]
     Active Substance: METOPROLOL
     Dosage: 50 MG, 1X/DAY
  3. WARFARIN [Concomitant]
     Active Substance: WARFARIN
     Dosage: 5 MG, 6X/WEEK
  4. CALCIUM/MAGNESIUM/ZINC [Concomitant]
     Dosage: 3 TABS, 1X/DAY
  5. MELATONIN [Concomitant]
     Active Substance: MELATONIN
     Dosage: 5 MG, 1X/DAY
  6. INSULIN 70/30 [Concomitant]
     Active Substance: INSULIN HUMAN
     Dosage: 16 U, 2X/DAY
  7. LISINOPRIL. [Concomitant]
     Active Substance: LISINOPRIL
     Dosage: 2.5 MG, 1X/DAY
  8. PRAVASTATIN. [Concomitant]
     Active Substance: PRAVASTATIN
     Dosage: 40 MG, 1X/DAY
  9. NORCO [Concomitant]
     Active Substance: ACETAMINOPHEN\HYDROCODONE BITARTRATE
     Dosage: UNK, AS NEEDED
  10. BABY ASPIRIN [Concomitant]
     Active Substance: ASPIRIN
     Dosage: 81 MG, 1X/DAY
  11. COQ10 [Concomitant]
     Active Substance: UBIDECARENONE
     Dosage: 200 MG, 1X/DAY
  12. WARFARIN [Concomitant]
     Active Substance: WARFARIN
     Dosage: 2.5 MG, 1X/WEEK

REACTIONS (3)
  - Wound secretion [Not Recovered/Not Resolved]
  - Wound complication [Recovering/Resolving]
  - Wound infection [Unknown]

NARRATIVE: CASE EVENT DATE: 2017
